FAERS Safety Report 11833562 (Version 3)
Quarter: 2016Q4

REPORT INFORMATION
  Report Type: Spontaneous
  Country: US (occurrence: US)
  Receive Date: 20151214
  Receipt Date: 20161228
  Transmission Date: 20170206
  Serious: Yes (Disabling, Other)
  Sender: FDA-Public Use
  Company Number: US-TEVA-617514USA

PATIENT
  Age: 28 Year
  Sex: Female

DRUGS (3)
  1. LEVOFLOXACIN. [Suspect]
     Active Substance: LEVOFLOXACIN
     Indication: SINUSITIS
     Dosage: 750 MG/DAY (10-DAY COURSE)
     Route: 065
  2. HYDROCODONE [Concomitant]
     Active Substance: HYDROCODONE
     Indication: PAIN
  3. LEVOFLOXACIN. [Suspect]
     Active Substance: LEVOFLOXACIN
     Indication: SINUSITIS
     Dosage: 750 MILLIGRAM DAILY; 750 MG/DAY (7-DAY COURSE)
     Route: 065

REACTIONS (27)
  - Tendon disorder [Not Recovered/Not Resolved]
  - Peripheral coldness [Not Recovered/Not Resolved]
  - Toxicity to various agents [Not Recovered/Not Resolved]
  - Dyspnoea [Not Recovered/Not Resolved]
  - Myalgia [Not Recovered/Not Resolved]
  - Arthralgia [Not Recovered/Not Resolved]
  - Gastrointestinal disorder [Not Recovered/Not Resolved]
  - Blood glucose abnormal [Not Recovered/Not Resolved]
  - Confusional state [Not Recovered/Not Resolved]
  - Neuropathy peripheral [Not Recovered/Not Resolved]
  - Fatigue [Not Recovered/Not Resolved]
  - Cognitive disorder [Not Recovered/Not Resolved]
  - Affective disorder [Not Recovered/Not Resolved]
  - Cardiovascular disorder [Unknown]
  - Alopecia [Not Recovered/Not Resolved]
  - Hypersensitivity [Not Recovered/Not Resolved]
  - Sensory disturbance [Not Recovered/Not Resolved]
  - Muscle atrophy [Not Recovered/Not Resolved]
  - Muscle spasms [Not Recovered/Not Resolved]
  - Eye disorder [Not Recovered/Not Resolved]
  - Respiratory muscle weakness [Not Recovered/Not Resolved]
  - Dry eye [Unknown]
  - Muscle contractions involuntary [Not Recovered/Not Resolved]
  - Bedridden [Unknown]
  - Sleep disorder [Not Recovered/Not Resolved]
  - Metabolic disorder [Unknown]
  - Headache [Not Recovered/Not Resolved]
